FAERS Safety Report 24397465 (Version 1)
Quarter: 2024Q4

REPORT INFORMATION
  Report Type: Spontaneous
  Country: US (occurrence: None)
  Receive Date: 20241003
  Receipt Date: 20241003
  Transmission Date: 20250114
  Serious: Yes (Hospitalization)
  Sender: Public
  Company Number: None

PATIENT
  Age: 80 Year
  Sex: Male
  Weight: 103 kg

DRUGS (1)
  1. RIVAROXABAN [Suspect]
     Active Substance: RIVAROXABAN
     Indication: Atrial fibrillation
     Dosage: FREQUENCY : DAILY;?
     Route: 048
     Dates: start: 20231120, end: 20240308

REACTIONS (4)
  - Gastrointestinal haemorrhage [None]
  - Dizziness [None]
  - Hypotension [None]
  - Asthenia [None]

NARRATIVE: CASE EVENT DATE: 20240305
